FAERS Safety Report 19580485 (Version 1)
Quarter: 2021Q3

REPORT INFORMATION
  Report Type: Spontaneous
  Country: FR (occurrence: FR)
  Receive Date: 20210720
  Receipt Date: 20210720
  Transmission Date: 20211014
  Serious: Yes (Other)
  Sender: FDA-Public Use
  Company Number: FR-SA-2021SA235372

PATIENT
  Age: 39 Year
  Sex: Female

DRUGS (1)
  1. FABRAZYME [Suspect]
     Active Substance: AGALSIDASE BETA
     Indication: FABRY^S DISEASE
     Dates: start: 20210615

REACTIONS (4)
  - Cerebellar ischaemia [Unknown]
  - Dysarthria [Unknown]
  - Disease progression [Unknown]
  - Hemiparesis [Unknown]

NARRATIVE: CASE EVENT DATE: 202106
